FAERS Safety Report 8955074 (Version 1)
Quarter: 2012Q4

REPORT INFORMATION
  Report Type: 
  Country: US (occurrence: US)
  Receive Date: 20121210
  Receipt Date: 20121210
  Transmission Date: 20130627
  Serious: No
  Sender: FDA-Public Use
  Company Number: US-PFIZER INC-2012304750

PATIENT
  Age: 27 Year
  Sex: Female
  Weight: 81.63 kg

DRUGS (2)
  1. DEPO-PROVERA [Suspect]
     Indication: PREOPERATIVE HORMONE TREATMENT
     Dosage: UNK
     Dates: start: 20120912
  2. PARAGARD 380A [Suspect]
     Indication: CONTRACEPTION
     Dosage: UNK
     Route: 015
     Dates: start: 20120220, end: 20121021

REACTIONS (3)
  - Metrorrhagia [Recovered/Resolved]
  - Uterine spasm [Recovered/Resolved]
  - Device expulsion [Recovered/Resolved]
